FAERS Safety Report 12492645 (Version 2)
Quarter: 2016Q3

REPORT INFORMATION
  Report Type: Report from Study
  Country: US (occurrence: US)
  Receive Date: 20160623
  Receipt Date: 20160805
  Transmission Date: 20161109
  Serious: Yes (Death, Other)
  Sender: FDA-Public Use
  Company Number: US-AMGEN-USASL2016080393

PATIENT
  Age: 91 Year
  Sex: Female
  Weight: 58.4 kg

DRUGS (9)
  1. METOPROLOL. [Concomitant]
     Active Substance: METOPROLOL
     Dosage: 25 MG, BID
  2. AMLODIPINE [Concomitant]
     Active Substance: AMLODIPINE BESYLATE
     Indication: BLOOD PRESSURE SYSTOLIC
     Dosage: 2.5 MG, QD
  3. ASPIRIN. [Concomitant]
     Active Substance: ASPIRIN
  4. CENTRUM SILVER [Concomitant]
     Active Substance: MINERALS\VITAMINS
     Dosage: 1 TABLET OCCASIONALLY
  5. CITALOPRAM [Concomitant]
     Active Substance: CITALOPRAM HYDROBROMIDE
     Dosage: 20 MG (ONE AND A HALF), QD
  6. PROLIA [Suspect]
     Active Substance: DENOSUMAB
     Indication: OSTEOPOROSIS
     Dosage: 60 MG, Q6MO
     Route: 058
     Dates: start: 20150818
  7. VITAMIN D3 [Concomitant]
     Active Substance: CHOLECALCIFEROL
     Dosage: 2000 UNIT, QD
  8. IRON [Concomitant]
     Active Substance: IRON
     Dosage: 27 MG, QD
  9. ALENDRONATE [Concomitant]
     Active Substance: ALENDRONATE SODIUM
     Dosage: 70 MG, QWK

REACTIONS (20)
  - Adverse event [Unknown]
  - Cardiac failure [Unknown]
  - Nausea [Unknown]
  - Agitation [Unknown]
  - Pain [Unknown]
  - Vascular dementia [Unknown]
  - Pyrexia [Unknown]
  - Arthralgia [Recovering/Resolving]
  - Death [Fatal]
  - Fatigue [Unknown]
  - Constipation [Unknown]
  - Anal incontinence [Unknown]
  - Hip fracture [Unknown]
  - Decreased appetite [Unknown]
  - Aortic stenosis [Unknown]
  - Somnolence [Unknown]
  - Asthenia [Unknown]
  - Anxiety [Unknown]
  - Hypokalaemia [Unknown]
  - Essential hypertension [Unknown]

NARRATIVE: CASE EVENT DATE: 20160228
